FAERS Safety Report 4644263-6 (Version None)
Quarter: 2005Q2

REPORT INFORMATION
  Report Type: 
  Country: None (occurrence: None)
  Receive Date: 20050422
  Receipt Date: 20050415
  Transmission Date: 20051028
  Serious: Yes (Hospitalization)
  Sender: FDA-Public Use
  Company Number: MEDI-0003188

PATIENT
  Sex: Male

DRUGS (2)
  1. ETHYOL [Suspect]
     Indication: RADIOTHERAPY
     Dosage: 1 IN 1 D
  2. RADIATION THERAPY [Concomitant]

REACTIONS (2)
  - FEEDING DISORDER [None]
  - RENAL FAILURE [None]
